FAERS Safety Report 23787721 (Version 2)
Quarter: 2024Q2

REPORT INFORMATION
  Report Type: Spontaneous
  Country: FR (occurrence: FR)
  Receive Date: 20240426
  Receipt Date: 20240516
  Transmission Date: 20240716
  Serious: Yes (Hospitalization)
  Sender: FDA-Public Use
  Company Number: None

PATIENT
  Age: 61 Year
  Sex: Male
  Weight: 81 kg

DRUGS (10)
  1. CABOMETYX [Suspect]
     Active Substance: CABOZANTINIB S-MALATE
     Indication: Clear cell renal cell carcinoma
     Dosage: 200 MG, Q WEEKLY
     Route: 048
     Dates: start: 202401, end: 20240328
  2. NIVOLUMAB [Suspect]
     Active Substance: NIVOLUMAB
     Indication: Clear cell renal cell carcinoma
     Dosage: UNK
     Route: 042
     Dates: start: 202309, end: 20240328
  3. IPILIMUMAB [Suspect]
     Active Substance: IPILIMUMAB
     Indication: Clear cell renal cell carcinoma
     Dosage: UNK
     Route: 042
     Dates: start: 202309, end: 202401
  4. DOLIPRANE [Concomitant]
     Active Substance: ACETAMINOPHEN
     Dosage: 1 G, PRN
     Route: 048
  5. COVERAM [Concomitant]
     Active Substance: AMLODIPINE\PERINDOPRIL
     Dosage: 1 {DF}, QD
     Route: 048
     Dates: end: 20240401
  6. SKENAN [Concomitant]
     Active Substance: MORPHINE SULFATE
     Dosage: 30 MG, QD
     Route: 048
     Dates: end: 20240401
  7. Calcidose [Concomitant]
     Dosage: 1 {DF}, QD
     Route: 048
  8. ESOMEPRAZOLE [Concomitant]
     Active Substance: ESOMEPRAZOLE
     Dosage: 20 MG, QD
     Route: 048
     Dates: end: 20240401
  9. PREGABALIN [Concomitant]
     Active Substance: PREGABALIN
     Dosage: 450 MG, QD
     Route: 048
     Dates: end: 20240401
  10. ATORVASTATIN [Concomitant]
     Active Substance: ATORVASTATIN
     Dosage: 10 MG, QD
     Route: 048
     Dates: end: 20240401

REACTIONS (1)
  - Hypophysitis [Recovering/Resolving]

NARRATIVE: CASE EVENT DATE: 20240401
